FAERS Safety Report 11088677 (Version 3)
Quarter: 2015Q3

REPORT INFORMATION
  Report Type: Report from Study
  Country: US (occurrence: US)
  Receive Date: 20150504
  Receipt Date: 20150820
  Transmission Date: 20151125
  Serious: Yes (Hospitalization)
  Sender: FDA-Public Use
  Company Number: US-ACTELION-A-US2015-117345

PATIENT
  Age: 69 Year
  Sex: Male

DRUGS (1)
  1. TRACLEER [Suspect]
     Active Substance: BOSENTAN
     Indication: PULMONARY ARTERIAL HYPERTENSION
     Dosage: 125 MG, UNK
     Route: 048

REACTIONS (18)
  - Syncope [Unknown]
  - Dyspnoea [Unknown]
  - Weight decreased [Unknown]
  - Exercise tolerance decreased [Unknown]
  - Dyspnoea exertional [Unknown]
  - Endotracheal intubation [Unknown]
  - Pneumonia [Unknown]
  - Bedridden [Unknown]
  - Dizziness [Unknown]
  - Cardiac failure congestive [Unknown]
  - Fall [Unknown]
  - Nocturnal dyspnoea [Unknown]
  - Choking [Unknown]
  - Chest pain [Unknown]
  - Constipation [Unknown]
  - Fatigue [Unknown]
  - Feeling abnormal [Unknown]
  - Muscular weakness [Unknown]

NARRATIVE: CASE EVENT DATE: 20150331
